FAERS Safety Report 21192064 (Version 2)
Quarter: 2022Q4

REPORT INFORMATION
  Report Type: Report from Study
  Country: US (occurrence: US)
  Receive Date: 20220809
  Receipt Date: 20221006
  Transmission Date: 20230113
  Serious: Yes (Life-Threatening, Hospitalization, Disabling, Other)
  Sender: FDA-Public Use
  Company Number: US-BRISTOL-MYERS SQUIBB COMPANY-2022-083381

PATIENT
  Age: 68 Year
  Sex: Female

DRUGS (6)
  1. CAMZYOS [Suspect]
     Active Substance: MAVACAMTEN
     Indication: Hypertrophic cardiomyopathy
     Dosage: DAILY
     Route: 048
     Dates: start: 20220626, end: 20220728
  2. CAMZYOS [Suspect]
     Active Substance: MAVACAMTEN
     Route: 065
     Dates: start: 20220702
  3. CAMZYOS [Suspect]
     Active Substance: MAVACAMTEN
     Route: 065
     Dates: start: 20220708
  4. CAMZYOS [Suspect]
     Active Substance: MAVACAMTEN
     Route: 065
     Dates: end: 20220728
  5. DISOPYRAMIDE [Concomitant]
     Active Substance: DISOPYRAMIDE
     Indication: Hypertrophic cardiomyopathy
     Route: 048
     Dates: start: 20200901, end: 20220624
  6. VERAPAMIL [Concomitant]
     Active Substance: VERAPAMIL HYDROCHLORIDE
     Indication: Hypertrophic cardiomyopathy
     Route: 048
     Dates: start: 20190307, end: 20220726

REACTIONS (2)
  - Atrial fibrillation [Recovered/Resolved]
  - Hypervolaemia [Recovering/Resolving]
